FAERS Safety Report 11291938 (Version 1)
Quarter: 2015Q3

REPORT INFORMATION
  Report Type: Spontaneous
  Country: US (occurrence: None)
  Receive Date: 20150721
  Receipt Date: 20150721
  Transmission Date: 20151125
  Serious: No
  Sender: FDA-Public Use
  Company Number: None

PATIENT
  Age: 74 Year
  Sex: Male

DRUGS (1)
  1. TIKOSYN [Suspect]
     Active Substance: DOFETILIDE
     Indication: ATRIAL FIBRILLATION
     Route: 048
     Dates: start: 20120210

REACTIONS (4)
  - Nausea [None]
  - Dyspnoea [None]
  - Fluid retention [None]
  - Cardiac failure [None]

NARRATIVE: CASE EVENT DATE: 20150710
